FAERS Safety Report 17625819 (Version 5)
Quarter: 2021Q4

REPORT INFORMATION
  Report Type: Report from Study
  Country: US (occurrence: US)
  Receive Date: 20200404
  Receipt Date: 20211116
  Transmission Date: 20220303
  Serious: Yes (Hospitalization)
  Sender: FDA-Public Use
  Company Number: NVSC2020US091088

PATIENT
  Age: 50 Year
  Sex: Female

DRUGS (2)
  1. ILARIS [Suspect]
     Active Substance: CANAKINUMAB
     Indication: Pyrexia
     Dosage: 150 MG, QMO
     Route: 058
     Dates: start: 20181222
  2. ILARIS [Suspect]
     Active Substance: CANAKINUMAB
     Dosage: 150 MG, QMO
     Route: 058
     Dates: start: 20200114, end: 20200611

REACTIONS (5)
  - Nasopharyngitis [Unknown]
  - Cough [Unknown]
  - Helicobacter infection [Unknown]
  - Tongue neoplasm [Unknown]
  - Infection [Unknown]

NARRATIVE: CASE EVENT DATE: 20200301
